FAERS Safety Report 15496535 (Version 1)
Quarter: 2018Q4

REPORT INFORMATION
  Report Type: Spontaneous
  Country: US (occurrence: US)
  Receive Date: 20181013
  Receipt Date: 20181013
  Transmission Date: 20190205
  Serious: No
  Sender: FDA-Public Use
  Company Number: US-SHIRE-US201839275

PATIENT
  Age: 73 Year
  Sex: Female
  Weight: 46.71 kg

DRUGS (4)
  1. XIIDRA [Suspect]
     Active Substance: LIFITEGRAST
     Indication: DRY EYE
     Dosage: 1 GTT, 2X/DAY:BID
     Route: 047
     Dates: start: 20181008, end: 20181009
  2. SYNTHROID [Concomitant]
     Active Substance: LEVOTHYROXINE SODIUM
     Indication: THYROID DISORDER
  3. NAPROXEN. [Concomitant]
     Active Substance: NAPROXEN
     Indication: PRODUCT USED FOR UNKNOWN INDICATION
  4. METHENAMINE [Concomitant]
     Active Substance: METHENAMINE
     Indication: URINARY TRACT INFECTION

REACTIONS (4)
  - Instillation site discomfort [Unknown]
  - Instillation site pain [Recovered/Resolved]
  - Vision blurred [Unknown]
  - Instillation site reaction [Unknown]

NARRATIVE: CASE EVENT DATE: 20181008
